FAERS Safety Report 8200428-8 (Version None)
Quarter: 2012Q1

REPORT INFORMATION
  Report Type: 
  Country: None (occurrence: None)
  Receive Date: 20120312
  Receipt Date: 20120302
  Transmission Date: 20120608
  Serious: Yes (Hospitalization, Other)
  Sender: FDA-Public Use
  Company Number: BR-SANOFI-AVENTIS-2012SA014713

PATIENT
  Age: 60 Year
  Sex: Male
  Weight: 60 kg

DRUGS (10)
  1. CILOSTAZOL [Concomitant]
     Route: 048
     Dates: start: 20111001
  2. SIMVASTATIN [Concomitant]
     Route: 048
     Dates: start: 20111001
  3. CLIKSTAR [Suspect]
     Indication: DEVICE THERAPY
     Dates: start: 20110901
  4. APIDRA [Suspect]
     Route: 065
     Dates: start: 20120302
  5. APIDRA [Suspect]
     Route: 065
  6. CLINDAMYCIN [Concomitant]
     Route: 048
  7. LANTUS [Suspect]
     Route: 058
     Dates: start: 20111001
  8. ACETYLSALICYLIC ACID/ISOSORBIDE MONONITRATE [Concomitant]
     Route: 048
     Dates: start: 20020101
  9. CLOPIDOGREL [Concomitant]
     Route: 048
     Dates: start: 20111001
  10. APIDRA [Suspect]
     Dosage: DOSE TO BE TAKEN ACCORDING TO GLYCEMIA
     Route: 058
     Dates: start: 20111001

REACTIONS (6)
  - HYPERGLYCAEMIA [None]
  - DRY MOUTH [None]
  - PAIN [None]
  - INFECTION [None]
  - LIMB DISCOMFORT [None]
  - MALAISE [None]
